FAERS Safety Report 4273669-2 (Version None)
Quarter: 2004Q1

REPORT INFORMATION
  Report Type: 
  Country: None (occurrence: None)
  Receive Date: 20040114
  Receipt Date: 20031230
  Transmission Date: 20041129
  Serious: Yes (Other)
  Sender: FDA-Public Use
  Company Number: 2003-DE-06497GD

PATIENT
  Age: 12 Year
  Sex: Female

DRUGS (4)
  1. CYCLOPHOSPHAMIDE [Suspect]
     Indication: THROMBOTIC THROMBOCYTOPENIC PURPURA
     Dosage: IV
     Route: 042
  2. METHYLPREDNISOLONE [Suspect]
     Indication: THROMBOTIC THROMBOCYTOPENIC PURPURA
  3. LABETALOL HCL [Concomitant]
  4. NIFEDIPINE [Concomitant]

REACTIONS (10)
  - ANAEMIA [None]
  - BONE MARROW DEPRESSION [None]
  - CATHETER RELATED INFECTION [None]
  - HAEMODIALYSIS [None]
  - HERPES ZOSTER [None]
  - HYPERTENSION [None]
  - PNEUMOCYSTIS CARINII PNEUMONIA [None]
  - PSEUDOMONAL SEPSIS [None]
  - THROMBOCYTOPENIA [None]
  - THROMBOTIC THROMBOCYTOPENIC PURPURA [None]
